FAERS Safety Report 15532600 (Version 3)
Quarter: 2019Q3

REPORT INFORMATION
  Report Type: Spontaneous
  Country: US (occurrence: US)
  Receive Date: 20181019
  Receipt Date: 20190912
  Transmission Date: 20191004
  Serious: Yes (Death, Other)
  Sender: FDA-Public Use
  Company Number: US-ASTRAZENECA-2018SF35983

PATIENT
  Age: 780 Month
  Sex: Female
  Weight: 56.7 kg

DRUGS (33)
  1. RENVELA [Concomitant]
     Active Substance: SEVELAMER CARBONATE
  2. HCTZ [Concomitant]
     Active Substance: HYDROCHLOROTHIAZIDE
  3. VITAMIN B12 [Concomitant]
     Active Substance: CYANOCOBALAMIN
  4. ASTELIN [Concomitant]
     Active Substance: AZELASTINE HYDROCHLORIDE
  5. AMLODIPINE [Concomitant]
     Active Substance: AMLODIPINE BESYLATE
  6. ONDANSETRON [Concomitant]
     Active Substance: ONDANSETRON
  7. METHADONE [Concomitant]
     Active Substance: METHADONE HYDROCHLORIDE
  8. NIASPAN [Concomitant]
     Active Substance: NIACIN
  9. GLIMEPIRIDE. [Concomitant]
     Active Substance: GLIMEPIRIDE
  10. VENLAFAXINE [Concomitant]
     Active Substance: VENLAFAXINE HYDROCHLORIDE
  11. FENTANYL. [Concomitant]
     Active Substance: FENTANYL
  12. NITROFURANTOIN. [Concomitant]
     Active Substance: NITROFURANTOIN
  13. METFORMIN [Concomitant]
     Active Substance: METFORMIN HYDROCHLORIDE
  14. PREMPRO [Concomitant]
     Active Substance: ESTROGENS, CONJUGATED\MEDROXYPROGESTERONE ACETATE
  15. LIMBREL [Concomitant]
     Active Substance: DIETARY SUPPLEMENT\FLAVOCOXID
  16. ASPIRIN. [Concomitant]
     Active Substance: ASPIRIN
  17. JANUVIA [Concomitant]
     Active Substance: SITAGLIPTIN PHOSPHATE
  18. VITAMIN D [Concomitant]
     Active Substance: VITAMIN D NOS
  19. LYRICA [Concomitant]
     Active Substance: PREGABALIN
  20. SOMA [Concomitant]
     Active Substance: CARISOPRODOL
  21. NEXIUM [Suspect]
     Active Substance: ESOMEPRAZOLE MAGNESIUM
     Indication: GASTROOESOPHAGEAL REFLUX DISEASE
     Dosage: 40.0MG UNKNOWN
     Route: 048
     Dates: start: 2007, end: 2017
  22. NEXIUM [Suspect]
     Active Substance: ESOMEPRAZOLE MAGNESIUM
     Indication: GASTROOESOPHAGEAL REFLUX DISEASE
     Dosage: GENERIC UNKNOWN
     Route: 065
     Dates: start: 2015, end: 2017
  23. LIPITOR [Concomitant]
     Active Substance: ATORVASTATIN CALCIUM
  24. ZETIA [Concomitant]
     Active Substance: EZETIMIBE
  25. RANITIDINE. [Concomitant]
     Active Substance: RANITIDINE
  26. LIDOCAIN [Concomitant]
     Active Substance: LIDOCAINE
  27. SINEMET [Concomitant]
     Active Substance: CARBIDOPA\LEVODOPA
  28. TORSEMIDE. [Concomitant]
     Active Substance: TORSEMIDE
  29. XANAX [Concomitant]
     Active Substance: ALPRAZOLAM
  30. CELEXA [Concomitant]
     Active Substance: CITALOPRAM HYDROBROMIDE
  31. EFFEXOR [Concomitant]
     Active Substance: VENLAFAXINE HYDROCHLORIDE
  32. ACTOS [Concomitant]
     Active Substance: PIOGLITAZONE HYDROCHLORIDE
  33. SODIUM BICARBONATE. [Concomitant]
     Active Substance: SODIUM BICARBONATE

REACTIONS (1)
  - Chronic kidney disease [Not Recovered/Not Resolved]

NARRATIVE: CASE EVENT DATE: 200811
